FAERS Safety Report 15504398 (Version 1)
Quarter: 2018Q4

REPORT INFORMATION
  Report Type: Spontaneous
  Country: US (occurrence: US)
  Receive Date: 20181009
  Receipt Date: 20181009
  Transmission Date: 20190205
  Serious: Yes (Death, Life-Threatening, Hospitalization)
  Sender: FDA-Public Use
  Company Number: None

PATIENT
  Age: 66 Year
  Sex: Male
  Weight: 85.7 kg

DRUGS (1)
  1. LIRAGLUTIDE [Suspect]
     Active Substance: LIRAGLUTIDE
     Indication: DIABETES MELLITUS
     Dosage: ?          OTHER DOSE:1.2 MG;?
     Route: 058
     Dates: start: 20180629, end: 20180726

REACTIONS (5)
  - Pancreatitis necrotising [None]
  - Peritonitis bacterial [None]
  - Cholangitis [None]
  - Septic shock [None]
  - Oesophagitis ulcerative [None]

NARRATIVE: CASE EVENT DATE: 20180726
